FAERS Safety Report 13292555 (Version 1)
Quarter: 2017Q1

REPORT INFORMATION
  Report Type: Spontaneous
  Country: ZA (occurrence: ZA)
  Receive Date: 20170303
  Receipt Date: 20170303
  Transmission Date: 20170428
  Serious: Yes (Other)
  Sender: FDA-Public Use
  Company Number: ZA-BAYER-2017-040150

PATIENT
  Age: 58 Year
  Sex: Female

DRUGS (1)
  1. NEXAVAR [Suspect]
     Active Substance: SORAFENIB
     Indication: METASTATIC RENAL CELL CARCINOMA
     Dosage: 400 MG, BID
     Route: 048
     Dates: start: 201609, end: 2017

REACTIONS (5)
  - Metastases to lung [None]
  - Renal cell carcinoma [None]
  - Metastases to liver [None]
  - Metastases to bone [None]
  - Metastases to peritoneum [None]

NARRATIVE: CASE EVENT DATE: 20170110
